FAERS Safety Report 25073692 (Version 1)
Quarter: 2025Q1

REPORT INFORMATION
  Report Type: Spontaneous
  Country: DE (occurrence: DE)
  Receive Date: 20250313
  Receipt Date: 20250313
  Transmission Date: 20250408
  Serious: Yes (Other)
  Sender: ALNYLAM PHARMACEUTICALS
  Company Number: DE-ALNYLAM PHARMACEUTICALS, INC.-ALN-2025-001557

PATIENT

DRUGS (3)
  1. GIVLAARI [Suspect]
     Active Substance: GIVOSIRAN SODIUM
     Indication: Porphyria acute
     Route: 065
     Dates: start: 2022
  2. HEMIN [Concomitant]
     Active Substance: HEMIN
     Indication: Porphyria acute
     Route: 065
  3. DEXTROSE [Concomitant]
     Active Substance: DEXTROSE MONOHYDRATE
     Indication: Porphyria acute
     Route: 065

REACTIONS (6)
  - Porphyria acute [Unknown]
  - Cholecystitis [Unknown]
  - Polymyalgia rheumatica [Unknown]
  - COVID-19 immunisation [Unknown]
  - Drug effect less than expected [Unknown]
  - Intentional product use issue [Unknown]
